FAERS Safety Report 6832175-9 (Version None)
Quarter: 2010Q3

REPORT INFORMATION
  Report Type: 
  Country: None (occurrence: None)
  Receive Date: 20100712
  Receipt Date: 20100629
  Transmission Date: 20110219
  Serious: Yes (Other)
  Sender: FDA-Public Use
  Company Number: PHHY2010US34677

PATIENT
  Sex: Female

DRUGS (10)
  1. RECLAST [Suspect]
     Dosage: UNK
     Dates: start: 20100201
  2. PLAVIX [Concomitant]
  3. CRESTOR [Concomitant]
  4. MOBIC [Concomitant]
  5. VITAMIN D [Concomitant]
  6. CALCIUM [Concomitant]
  7. ASPIRIN [Concomitant]
  8. CATAPRES [Concomitant]
  9. VITAMINS [Concomitant]
  10. CARBON MONOXIDE 210 [Concomitant]

REACTIONS (4)
  - ANGINA PECTORIS [None]
  - CARDIAC DISORDER [None]
  - CHEST DISCOMFORT [None]
  - PAIN [None]
